FAERS Safety Report 23505275 (Version 6)
Quarter: 2024Q3

REPORT INFORMATION
  Report Type: Report from Study
  Country: DE (occurrence: DE)
  Receive Date: 20240209
  Receipt Date: 20240704
  Transmission Date: 20241017
  Serious: No
  Sender: JOHNSON AND JOHNSON
  Company Number: DE-JNJFOC-20240205944

PATIENT
  Age: 36 Year
  Sex: Male

DRUGS (1)
  1. SPRAVATO [Suspect]
     Active Substance: ESKETAMINE
     Indication: Depression
     Dosage: 56 MG (2 DEVICES) RECEIVED DOSES ON 12-DEC-2023, 14-DEC-2023, 19-DEC-2023, 21-DEC-2023, 27-DEC-2023,
     Dates: start: 20231207, end: 20240130

REACTIONS (12)
  - Auditory disorder [Recovered/Resolved]
  - Taste disorder [Recovered/Resolved]
  - Somnolence [Recovered/Resolved]
  - Hyperacusis [Recovered/Resolved]
  - Diplopia [Recovered/Resolved]
  - Vertigo [Recovered/Resolved]
  - Confusional state [Recovered/Resolved]
  - Visual impairment [Recovered/Resolved]
  - Tinnitus [Recovered/Resolved]
  - Nausea [Recovered/Resolved]
  - Headache [Recovered/Resolved]
  - COVID-19 [Recovered/Resolved]

NARRATIVE: CASE EVENT DATE: 20231207
